FAERS Safety Report 5569656-4 (Version None)
Quarter: 2007Q4

REPORT INFORMATION
  Report Type: 
  Country: None (occurrence: None)
  Receive Date: 20071220
  Receipt Date: 20071217
  Transmission Date: 20080405
  Serious: Yes (Hospitalization)
  Sender: FDA-Public Use
  Company Number: B0488510A

PATIENT
  Age: 69 Year
  Sex: Female
  Weight: 74 kg

DRUGS (5)
  1. ROSIGLITAZONE [Suspect]
     Dates: start: 20030401
  2. PREMARIN [Concomitant]
     Dates: end: 20070830
  3. ACCUPRIL [Concomitant]
     Dates: end: 20070830
  4. DAPATABS [Concomitant]
     Dates: end: 20070830
  5. COVERSYL [Concomitant]
     Dosage: 10MG PER DAY
     Dates: start: 20070830

REACTIONS (3)
  - ANAEMIA [None]
  - DYSPNOEA [None]
  - ENDOCARDITIS [None]
